FAERS Safety Report 9737508 (Version 1)
Quarter: 2013Q4

REPORT INFORMATION
  Report Type: Spontaneous
  Country: CA (occurrence: CA)
  Receive Date: 20131206
  Receipt Date: 20131206
  Transmission Date: 20140711
  Serious: Yes (Death)
  Sender: FDA-Public Use
  Company Number: CA-ASTRAZENECA-2013SE88675

PATIENT
  Age: 19 Year
  Sex: Female

DRUGS (11)
  1. SEROQUEL [Suspect]
     Route: 048
  2. APO DIAZEPAM [Suspect]
     Route: 065
  3. APO-AMITRIPTYLINE HCL [Suspect]
     Route: 065
  4. ATIVAN [Suspect]
     Route: 065
  5. HALDOL [Suspect]
     Route: 065
  6. RIVA-CITALOPRAM [Suspect]
     Route: 065
  7. ZYPREXA ZYDIS [Suspect]
     Route: 065
  8. ACETAMINOPHEN [Concomitant]
  9. BENZTROPINE MESYLATE [Concomitant]
  10. MORPHINE SULFATE [Concomitant]
  11. VIOXX [Concomitant]

REACTIONS (29)
  - Completed suicide [Fatal]
  - Suicidal ideation [Fatal]
  - Abnormal behaviour [Fatal]
  - Affect lability [Fatal]
  - Aggression [Fatal]
  - Anger [Fatal]
  - Asphyxia [Fatal]
  - Cervical vertebral fracture [Fatal]
  - Confusional state [Fatal]
  - Depersonalisation [Fatal]
  - Depressed level of consciousness [Fatal]
  - Depressed mood [Fatal]
  - Depression [Fatal]
  - Disinhibition [Fatal]
  - Drug withdrawal syndrome [Fatal]
  - Dyskinesia [Fatal]
  - Face oedema [Fatal]
  - Gait disturbance [Fatal]
  - Injury [Fatal]
  - Irritability [Fatal]
  - Laceration [Fatal]
  - Major depression [Fatal]
  - Morbid thoughts [Fatal]
  - Mouth haemorrhage [Fatal]
  - Personality disorder [Fatal]
  - Psychotic disorder [Fatal]
  - Sleep disorder [Fatal]
  - Social avoidant behaviour [Fatal]
  - Treatment noncompliance [Fatal]
